FAERS Safety Report 5479825-X (Version None)
Quarter: 2007Q4

REPORT INFORMATION
  Report Type: 
  Country: None (occurrence: None)
  Receive Date: 20071008
  Receipt Date: 20071003
  Transmission Date: 20080405
  Serious: Yes (Death, Hospitalization)
  Sender: FDA-Public Use
  Company Number: FR-GENENTECH-248949

PATIENT
  Sex: Female

DRUGS (5)
  1. RITUXIMAB [Suspect]
     Indication: MANTLE CELL LYMPHOMA
     Dosage: 668 MG, UNK
     Dates: start: 20060202
  2. CYCLOPHOSPHAMIDE [Suspect]
     Indication: MANTLE CELL LYMPHOMA
     Dosage: 1335 MG, UNK
     Dates: start: 20060202
  3. DOXORUBICIN HCL [Suspect]
     Indication: MANTLE CELL LYMPHOMA
     Dosage: 90 MG, UNK
     Dates: start: 20060202
  4. VINCRISTINE [Suspect]
     Indication: MANTLE CELL LYMPHOMA
     Dosage: 2 MG, UNK
     Dates: start: 20060202
  5. SOLU-MEDROL [Suspect]
     Indication: MANTLE CELL LYMPHOMA
     Dates: start: 20060202

REACTIONS (2)
  - CORONARY ARTERY STENOSIS [None]
  - DEATH [None]
